FAERS Safety Report 8739540 (Version 3)
Quarter: 2013Q4

REPORT INFORMATION
  Report Type: Report from Study
  Country: DE (occurrence: DE)
  Receive Date: 20120823
  Receipt Date: 20131001
  Transmission Date: 20140711
  Serious: Yes (Hospitalization)
  Sender: FDA-Public Use
  Company Number: PHHO2012DE012003

PATIENT
  Age: 70 Year
  Sex: Male
  Weight: 85 kg

DRUGS (16)
  1. MABTHERA [Suspect]
     Indication: NON-HODGKIN^S LYMPHOMA
     Dosage: UNK
     Route: 042
     Dates: start: 20120728, end: 20120728
  2. CYCLOPHOSPHAMIDE [Suspect]
     Indication: CHEMOTHERAPY
  3. RAMIPRIL [Suspect]
  4. VINCRISTINE [Suspect]
     Indication: CHEMOTHERAPY
  5. PREDNISONE [Suspect]
     Indication: CHEMOTHERAPY
  6. DIURETICS [Suspect]
  7. BELOC [Concomitant]
     Indication: HYPERTENSION
     Dates: start: 20120728
  8. ALLOPURINOL [Concomitant]
     Indication: HYPERURICAEMIA
     Dosage: UNK
     Dates: start: 20120702, end: 20120813
  9. ALLOPURINOL [Concomitant]
     Dosage: UNK
     Dates: start: 20120814
  10. KALINOR [Concomitant]
     Indication: HYPOCALCAEMIA
     Dosage: 16 MMOL/L, UNK
     Dates: start: 20120728, end: 20120813
  11. KALINOR [Concomitant]
     Dosage: 48 MOL, UNK
     Dates: start: 20120814
  12. PANTOZOL [Concomitant]
     Indication: PROPHYLAXIS AGAINST GASTROINTESTINAL ULCER
     Dosage: UNK
     Dates: start: 20120728, end: 20120813
  13. PANTOZOL [Concomitant]
     Dosage: UNK
     Dates: start: 20120814
  14. DELIX [Concomitant]
     Indication: HYPERTENSION
     Dosage: UNK
     Dates: start: 20120702, end: 20120814
  15. TOREM [Concomitant]
     Indication: OEDEMA
     Dosage: 10 MG, UNK
     Dates: start: 20120708
  16. HYDROCHLOROTHIAZIDE [Concomitant]
     Indication: OEDEMA
     Dosage: UNK
     Dates: start: 20120728, end: 20120814

REACTIONS (1)
  - Ascites [Not Recovered/Not Resolved]
